FAERS Safety Report 8974187 (Version 1)
Quarter: 2012Q4

REPORT INFORMATION
  Report Type: Spontaneous
  Country: US (occurrence: None)
  Receive Date: 20121217
  Receipt Date: 20121217
  Transmission Date: 20130627
  Serious: Yes (Life-Threatening, Hospitalization, Disabling)
  Sender: FDA-Public Use
  Company Number: None

PATIENT
  Age: 34 Year
  Sex: Male
  Weight: 127.01 kg

DRUGS (1)
  1. RISPERIDONE [Suspect]
     Indication: PARANOIA
     Dosage: current as of 12-6-12 2 weeks prior as well

REACTIONS (2)
  - Nausea [None]
  - Adverse reaction [None]
